FAERS Safety Report 17756472 (Version 1)
Quarter: 2020Q2

REPORT INFORMATION
  Report Type: Spontaneous
  Country: FR (occurrence: FR)
  Receive Date: 20200507
  Receipt Date: 20200507
  Transmission Date: 20200714
  Serious: Yes (Other)
  Sender: FDA-Public Use
  Company Number: FR-CADILA HEALTHCARE LIMITED-FR-ZYDUS-022718

PATIENT

DRUGS (17)
  1. OMEPRAZOLE. [Concomitant]
     Active Substance: OMEPRAZOLE
  2. KEPPRA [Concomitant]
     Active Substance: LEVETIRACETAM
  3. AVOCAT (HUILE D^) (FRACTION INSAPONIFIABLE D^),SOJA-HISPIDA-FRACTION-I [Concomitant]
     Dosage: ()
  4. FUROSEMIDE. [Concomitant]
     Active Substance: FUROSEMIDE
  5. DUTASTERIDE. [Concomitant]
     Active Substance: DUTASTERIDE
  6. SPIRIVA [Concomitant]
     Active Substance: TIOTROPIUM BROMIDE MONOHYDRATE
     Dosage: ()
  7. PREVISCAN [Concomitant]
  8. VENTOLINE [Concomitant]
     Active Substance: ALBUTEROL
  9. AMIODARONE [Suspect]
     Active Substance: AMIODARONE
     Indication: ATRIAL FIBRILLATION
     Dosage: 1 DOSAGE FORM,(INTERVAL :1 DAYS)
     Route: 048
  10. LACTULOSE. [Concomitant]
     Active Substance: LACTULOSE
  11. DEPAKINE [Concomitant]
     Active Substance: VALPROATE SODIUM
  12. SYMBICORT [Concomitant]
     Active Substance: BUDESONIDE\FORMOTEROL FUMARATE DIHYDRATE
  13. BIPRETERAX [Concomitant]
     Active Substance: INDAPAMIDE\PERINDOPRIL
  14. INEGY [Concomitant]
     Active Substance: EZETIMIBE\SIMVASTATIN
  15. DOLIPRANE [Concomitant]
     Active Substance: ACETAMINOPHEN
  16. ATENOLOL. [Concomitant]
     Active Substance: ATENOLOL
  17. IXPRIM [Concomitant]
     Active Substance: ACETAMINOPHEN\TRAMADOL HYDROCHLORIDE

REACTIONS (2)
  - Thyroxine free increased [Not Recovered/Not Resolved]
  - Blood thyroid stimulating hormone decreased [Not Recovered/Not Resolved]

NARRATIVE: CASE EVENT DATE: 20180125
